FAERS Safety Report 5635556-4 (Version None)
Quarter: 2008Q1

REPORT INFORMATION
  Report Type: 
  Country: None (occurrence: None)
  Receive Date: 20080222
  Receipt Date: 20080214
  Transmission Date: 20080703
  Serious: Yes (Other)
  Sender: FDA-Public Use
  Company Number: DE-PFIZER INC-2008015045

PATIENT
  Age: 74 Year
  Sex: Female

DRUGS (4)
  1. SORTIS [Suspect]
     Dosage: DAILY DOSE:10MG-TEXT:10MG/D
     Route: 048
  2. L-THYROXIN [Concomitant]
  3. FOSAMAX [Concomitant]
     Route: 048
  4. CALCIUM [Concomitant]

REACTIONS (1)
  - THROMBOPHLEBITIS SUPERFICIAL [None]
